FAERS Safety Report 5689674-5 (Version None)
Quarter: 2008Q1

REPORT INFORMATION
  Report Type: 
  Country: None (occurrence: None)
  Receive Date: 20080328
  Receipt Date: 20070515
  Transmission Date: 20080703
  Serious: Yes (Life-Threatening, Hospitalization)
  Sender: FDA-Public Use
  Company Number: 75701

PATIENT
  Age: 46 Year
  Sex: Male
  Weight: 100 kg

DRUGS (1)
  1. IBUPROFEN [Suspect]
     Dosage: 400MG/ORAL
     Route: 048
     Dates: start: 20070422, end: 20070422

REACTIONS (1)
  - ASTHMA [None]
